FAERS Safety Report 14693768 (Version 1)
Quarter: 2018Q1

REPORT INFORMATION
  Report Type: Spontaneous
  Country: DZ (occurrence: DZ)
  Receive Date: 20180329
  Receipt Date: 20180329
  Transmission Date: 20180509
  Serious: Yes (Hospitalization)
  Sender: FDA-Public Use
  Company Number: DZ-MYLANLABS-2018M1021722

PATIENT
  Age: 13 Year
  Sex: Male
  Weight: 28 kg

DRUGS (14)
  1. RHZE [Concomitant]
     Indication: TUBERCULOSIS
     Dosage: 2075 MG, QD
     Route: 048
     Dates: start: 20180223
  2. PREDNISONE. [Concomitant]
     Active Substance: PREDNISONE
     Indication: RENAL TRANSPLANT
     Dosage: 5 MG, QD
     Route: 048
     Dates: start: 20111211
  3. OMEPRAZOLE. [Concomitant]
     Active Substance: OMEPRAZOLE
     Indication: CYSTINOSIS
     Dosage: 20 MG, QD
     Route: 048
     Dates: start: 20111211, end: 20180314
  4. CELLCEPT [Concomitant]
     Active Substance: MYCOPHENOLATE MOFETIL\MYCOPHENOLATE MOFETIL HYDROCHLORIDE
     Indication: RENAL TRANSPLANT
     Dosage: 250 MG, QD
     Route: 048
     Dates: start: 20111211
  5. FLAGYL [Concomitant]
     Active Substance: METRONIDAZOLE\METRONIDAZOLE HYDROCHLORIDE
     Indication: CHOLECYSTITIS
     Dosage: 500 MG, QD
     Route: 048
     Dates: start: 20180219, end: 20180308
  6. AMLOR [Concomitant]
     Active Substance: AMLODIPINE BESYLATE
     Indication: HYPERTENSION
     Dosage: 10 MG, QD
     Route: 048
     Dates: start: 20180102
  7. OMEPRAZOLE. [Concomitant]
     Active Substance: OMEPRAZOLE
     Indication: RENAL TRANSPLANT
  8. PROGRAF [Concomitant]
     Active Substance: TACROLIMUS\TACROLIMUS ANHYDROUS
     Indication: RENAL TRANSPLANT
     Dosage: 4.5 MG, QD
     Route: 048
     Dates: start: 20121211
  9. SODIUM BICARBONATE. [Concomitant]
     Active Substance: SODIUM BICARBONATE
     Indication: RENAL TUBULAR ACIDOSIS
     Dosage: 160 MG, QD
     Route: 048
     Dates: start: 20171102
  10. CYMEVAN [Concomitant]
     Active Substance: GANCICLOVIR
     Indication: PLEURAL EFFUSION
  11. OFLOCET [Concomitant]
     Active Substance: OFLOXACIN
     Indication: PROPHYLAXIS
     Dosage: 200 MG, QD
     Route: 048
     Dates: start: 20180222
  12. CYMEVAN [Concomitant]
     Active Substance: GANCICLOVIR
     Indication: PERICARDIAL EFFUSION
     Dosage: 80 MG, QD
     Route: 048
     Dates: start: 20180222, end: 20180308
  13. CYSTAGON [Suspect]
     Active Substance: CYSTEAMINE BITARTRATE
     Indication: CYSTINOSIS
     Dosage: 1500 MG, QD
     Route: 048
     Dates: start: 2007, end: 20180310
  14. TRIATEC                            /00885601/ [Concomitant]
     Active Substance: RAMIPRIL
     Indication: HYPERTENSION
     Dosage: 2.5 MG, QD
     Route: 048
     Dates: start: 20071102

REACTIONS (5)
  - Anxiety disorder [Recovering/Resolving]
  - Overdose [Unknown]
  - Thinking abnormal [Recovering/Resolving]
  - Agitation [Recovering/Resolving]
  - Social fear [Recovering/Resolving]

NARRATIVE: CASE EVENT DATE: 20180309
